FAERS Safety Report 16138935 (Version 5)
Quarter: 2019Q2

REPORT INFORMATION
  Report Type: Spontaneous
  Country: PT (occurrence: PT)
  Receive Date: 20190401
  Receipt Date: 20190524
  Transmission Date: 20190711
  Serious: Yes (Death, Hospitalization, Other)
  Sender: FDA-Public Use
  Company Number: PT-AUROBINDO-AUR-APL-2019-016883

PATIENT

DRUGS (9)
  1. SPIRONOLACTONE. [Suspect]
     Active Substance: SPIRONOLACTONE
     Indication: ACID BASE BALANCE
     Dosage: UNK
     Route: 065
  2. GLUCOSAMINE [Suspect]
     Active Substance: GLUCOSAMINE
     Indication: NEURALGIA
     Dosage: UNK
     Route: 065
  3. FUROSEMIDE. [Suspect]
     Active Substance: FUROSEMIDE
     Dosage: 40 MILLIGRAM (ON THE FOLLOWING DAY) FOR 3 DAYS
     Route: 065
  4. BETAMETHASONE. [Suspect]
     Active Substance: BETAMETHASONE
     Indication: SCIATICA
  5. ACETAZOLAMIDE. [Concomitant]
     Active Substance: ACETAZOLAMIDE
     Indication: ACID BASE BALANCE
     Dosage: UNK
     Route: 065
  6. GLUCOSAMINE [Suspect]
     Active Substance: GLUCOSAMINE
     Indication: SCIATICA
  7. FUROSEMIDE. [Suspect]
     Active Substance: FUROSEMIDE
     Indication: FACE OEDEMA
     Dosage: 40 MILLIGRAM (ONE DAY)
     Route: 065
  8. BETAMETHASONE. [Suspect]
     Active Substance: BETAMETHASONE
     Indication: NEURALGIA
     Dosage: UNK
     Route: 030
  9. CALCIUM [Suspect]
     Active Substance: CALCIUM
     Indication: SCIATICA
     Dosage: UNK
     Route: 065

REACTIONS (30)
  - Respiratory tract infection [Fatal]
  - Muscular weakness [Unknown]
  - Off label use [Unknown]
  - Asthenia [Unknown]
  - Electrolyte imbalance [Unknown]
  - Autonomic nervous system imbalance [Unknown]
  - Blood glucose fluctuation [Unknown]
  - Cortisol increased [Unknown]
  - Gastrointestinal disorder [Unknown]
  - Somatostatin receptor scan abnormal [Unknown]
  - Hyperglycaemia [Unknown]
  - Balance disorder [Unknown]
  - Blood pressure increased [Unknown]
  - Blood corticotrophin increased [Unknown]
  - Dry mouth [Unknown]
  - Diverticulitis [Unknown]
  - Product use in unapproved indication [Unknown]
  - Face oedema [Unknown]
  - Rash macular [Unknown]
  - Hypokalaemia [Unknown]
  - Hypercalciuria [Unknown]
  - Tumour ulceration [Unknown]
  - Gait disturbance [Unknown]
  - Erythema [Unknown]
  - Metabolic alkalosis [Unknown]
  - Peritonitis [Unknown]
  - Lacrimation increased [Unknown]
  - Crying [Unknown]
  - Oedema peripheral [Unknown]
  - Ectopic ACTH syndrome [Unknown]
